FAERS Safety Report 16925112 (Version 1)
Quarter: 2019Q4

REPORT INFORMATION
  Report Type: Spontaneous
  Country: US (occurrence: US)
  Receive Date: 20190823
  Receipt Date: 20190823
  Transmission Date: 20200122
  Serious: No
  Sender: FDA-Public Use
  Company Number: None

PATIENT
  Age: 22 Year
  Sex: Male

DRUGS (19)
  1. ALBUTEROL. [Concomitant]
     Active Substance: ALBUTEROL
  2. CIPRO [Concomitant]
     Active Substance: CIPROFLOXACIN HYDROCHLORIDE
  3. CYPRHEPTAD [Concomitant]
  4. ADVAIR HFA [Concomitant]
     Active Substance: FLUTICASONE PROPIONATE\SALMETEROL XINAFOATE
  5. NEXIUM [Concomitant]
     Active Substance: ESOMEPRAZOLE MAGNESIUM
  6. PREDNISOLONE. [Concomitant]
     Active Substance: PREDNISOLONE
  7. XOLAIR [Suspect]
     Active Substance: OMALIZUMAB
     Indication: CYSTIC FIBROSIS
     Route: 058
     Dates: start: 20150129
  8. XOLAIR [Suspect]
     Active Substance: OMALIZUMAB
     Indication: CYSTIC FIBROSIS
     Route: 058
     Dates: start: 20190628
  9. CEPHALEXIN. [Concomitant]
     Active Substance: CEPHALEXIN
  10. VIOKASE [Concomitant]
     Active Substance: PANCRELIPASE
  11. ORKAMBI [Concomitant]
     Active Substance: IVACAFTOR\LUMACAFTOR
  12. CLINDAMYCIN. [Concomitant]
     Active Substance: CLINDAMYCIN
  13. SOD CHLOR [Concomitant]
  14. CREON [Concomitant]
     Active Substance: PANCRELIPASE AMYLASE\PANCRELIPASE LIPASE\PANCRELIPASE PROTEASE
  15. PULMOZYME [Concomitant]
     Active Substance: DORNASE ALFA
  16. SPORANOX [Concomitant]
     Active Substance: ITRACONAZOLE
  17. TOBI PODHALER [Concomitant]
     Active Substance: TOBRAMYCIN
  18. DRONABINOL. [Concomitant]
     Active Substance: DRONABINOL
  19. VITD [Concomitant]

REACTIONS (1)
  - Migraine [None]

NARRATIVE: CASE EVENT DATE: 2019
